FAERS Safety Report 12831118 (Version 1)
Quarter: 2016Q4

REPORT INFORMATION
  Report Type: Spontaneous
  Country: US (occurrence: US)
  Receive Date: 20161008
  Receipt Date: 20161008
  Transmission Date: 20170207
  Serious: Yes (Hospitalization)
  Sender: FDA-Public Use
  Company Number: US-B.I. PHARMACEUTICALS,INC./RIDGEFIELD-2016-BI-064720

PATIENT
  Age: 74 Year
  Sex: Female

DRUGS (1)
  1. SPIRIVA [Suspect]
     Active Substance: TIOTROPIUM BROMIDE MONOHYDRATE
     Indication: ASTHMA
     Route: 055
     Dates: start: 20160629

REACTIONS (7)
  - Tracheal pain [Recovered/Resolved]
  - Dyspnoea [Recovered/Resolved]
  - Oral herpes [Not Recovered/Not Resolved]
  - Abdominal pain [Recovered/Resolved]
  - Oral mucosal blistering [Not Recovered/Not Resolved]
  - Off label use [Unknown]
  - Cold sweat [Recovered/Resolved]

NARRATIVE: CASE EVENT DATE: 20160629
